FAERS Safety Report 22630379 (Version 1)
Quarter: 2023Q2

REPORT INFORMATION
  Report Type: Spontaneous
  Country: US (occurrence: None)
  Receive Date: 20230620
  Receipt Date: 20230620
  Transmission Date: 20230722
  Serious: No
  Sender: FDA-Public Use
  Company Number: None

PATIENT
  Age: 81 Year
  Weight: 71.67 kg

DRUGS (6)
  1. ABIRATERONE [Suspect]
     Active Substance: ABIRATERONE
     Indication: Prostate cancer
     Dosage: FREQUENCY : DAILY;?
     Route: 048
     Dates: start: 20230112, end: 20230620
  2. PREDNISONE [Concomitant]
     Active Substance: PREDNISONE
  3. IRBESARTAN [Concomitant]
     Active Substance: IRBESARTAN
  4. FERROUS SULFATE [Concomitant]
  5. ALLOPURINOL [Concomitant]
     Active Substance: ALLOPURINOL
  6. FUROSEMIDE [Concomitant]

REACTIONS (1)
  - Nephrolithiasis [None]
